FAERS Safety Report 11252148 (Version 1)
Quarter: 2015Q3

REPORT INFORMATION
  Report Type: Spontaneous
  Country: US (occurrence: US)
  Receive Date: 20150708
  Receipt Date: 20150708
  Transmission Date: 20151125
  Serious: Yes (Other)
  Sender: FDA-Public Use
  Company Number: US-ELI_LILLY_AND_COMPANY-US201304007601

PATIENT
  Age: 75 Year
  Sex: Female
  Weight: 72 kg

DRUGS (24)
  1. FOLIC ACID. [Concomitant]
     Active Substance: FOLIC ACID
     Dosage: 1 MG, QD
     Dates: start: 20120723, end: 20121120
  2. DEXAMETHASONE. [Concomitant]
     Active Substance: DEXAMETHASONE
     Dosage: 10 MG, UNK
     Dates: start: 20120806, end: 20121008
  3. LISINOPRIL. [Concomitant]
     Active Substance: LISINOPRIL
     Dosage: 20 MG, QD
     Dates: start: 2010
  4. NAPROXEN. [Concomitant]
     Active Substance: NAPROXEN
  5. ZANTAC [Concomitant]
     Active Substance: RANITIDINE HYDROCHLORIDE
     Dosage: 150 MG, UNKNOWN
     Dates: start: 20121029, end: 20130402
  6. FOSAMAX [Concomitant]
     Active Substance: ALENDRONATE SODIUM
  7. HYDROXYZINE PAMOATE. [Concomitant]
     Active Substance: HYDROXYZINE PAMOATE
     Dosage: 25 MG, UNK
     Dates: start: 20121029, end: 20130402
  8. PNEUMOCOCCAL VACCINE [Concomitant]
     Active Substance: PNEUMOCOCCAL VACCINE POLYVALENT
     Dosage: 0.05 ML, UNKNOWN
     Dates: start: 20121007, end: 20121007
  9. ZITHROMAX [Concomitant]
     Active Substance: AZITHROMYCIN DIHYDRATE
     Dosage: UNK
     Dates: start: 20120320
  10. AVASTIN [Concomitant]
     Active Substance: BEVACIZUMAB
     Indication: LUNG NEOPLASM MALIGNANT
     Dosage: UNK
     Dates: start: 20120806, end: 20121008
  11. VITAMIN B12 [Concomitant]
     Active Substance: CYANOCOBALAMIN
     Dosage: 1000 UG, UNK
     Route: 030
     Dates: start: 20120723, end: 20120917
  12. PARAPLATIN [Concomitant]
     Active Substance: CARBOPLATIN
     Dosage: UNK
     Dates: start: 20121029, end: 20130402
  13. DEXAMETHASONE. [Concomitant]
     Active Substance: DEXAMETHASONE
     Dosage: 12 MG, UNK
     Dates: start: 20121029, end: 20130402
  14. FOSAPREPITANT MEGLUMINE [Concomitant]
     Active Substance: FOSAPREPITANT
     Dosage: 150 MG, UNK
     Dates: start: 20121029, end: 20130402
  15. CALCIUM W/VITAMINS NOS [Concomitant]
  16. COMPAZINE [Concomitant]
     Active Substance: PROCHLORPERAZINE MALEATE
     Dosage: UNK
     Dates: start: 20120806
  17. DARBEPOETIN ALFA [Concomitant]
     Active Substance: DARBEPOETIN ALFA
     Dosage: 500 UG, UNK
     Dates: start: 20121205, end: 20130402
  18. HYDROCODONE W/ACETAMINOPHEN [Concomitant]
     Active Substance: ACETAMINOPHEN\HYDROCODONE BITARTRATE
     Dosage: 5 MG, UNKNOWN
     Dates: start: 20121105, end: 20121115
  19. PALONOSETRON HYDROCHLORIDE [Concomitant]
     Active Substance: PALONOSETRON HYDROCHLORIDE
     Dosage: 0.25 MG, UNKNOWN
     Route: 042
     Dates: start: 20121029, end: 20130403
  20. ALIMTA [Suspect]
     Active Substance: PEMETREXED DISODIUM
     Indication: LUNG NEOPLASM MALIGNANT
     Dosage: 890 MG, EVERY 21 DAYS
     Route: 042
     Dates: start: 20120806, end: 20121008
  21. PEGFILGRASTIM [Concomitant]
     Active Substance: PEGFILGRASTIM
     Dosage: 6 MG, UNKNOWN
     Route: 058
     Dates: start: 20121030, end: 20130403
  22. PHENERGAN [Concomitant]
     Active Substance: PROMETHAZINE HYDROCHLORIDE
     Dosage: UNK
     Route: 054
     Dates: start: 20120806
  23. PACLITAXEL. [Concomitant]
     Active Substance: PACLITAXEL
     Dosage: UNK
     Dates: start: 20121029, end: 20130402
  24. LEVAQUIN [Concomitant]
     Active Substance: LEVOFLOXACIN
     Dosage: 500 MG, UNK
     Dates: start: 20120904, end: 20120911

REACTIONS (8)
  - Neutropenia [Recovered/Resolved]
  - Malignant neoplasm progression [Not Recovered/Not Resolved]
  - Off label use [Recovered/Resolved]
  - Lymphocyte count decreased [Recovered/Resolved]
  - White blood cell count decreased [Recovered/Resolved]
  - Hyponatraemia [Recovered/Resolved]
  - Anaemia [Not Recovered/Not Resolved]
  - Blood alkaline phosphatase increased [Unknown]

NARRATIVE: CASE EVENT DATE: 20120806
